FAERS Safety Report 7342214-7 (Version None)
Quarter: 2011Q1

REPORT INFORMATION
  Report Type: 
  Country: None (occurrence: None)
  Receive Date: 20110310
  Receipt Date: 20110304
  Transmission Date: 20110831
  Serious: Yes (Other)
  Sender: FDA-Public Use
  Company Number: US-ASTRAZENECA-2007UW21664

PATIENT
  Age: 15411 Day
  Sex: Female
  Weight: 129.3 kg

DRUGS (48)
  1. ZOLOFT [Concomitant]
     Dates: start: 20040305
  2. METFORMIN [Concomitant]
  3. PREDNISONE [Concomitant]
  4. DIOVAN [Concomitant]
  5. AMBIEN [Concomitant]
  6. SEROQUEL [Suspect]
     Indication: ANXIETY
     Dosage: 25 TO 50 MG
     Route: 048
     Dates: start: 20040305
  7. SEROQUEL [Suspect]
     Dosage: 25 TO 300 MG
     Route: 048
  8. RANITIDINE [Concomitant]
  9. SEROQUEL [Suspect]
     Indication: SLEEP DISORDER
     Dosage: 25 TO 50 MG
     Route: 048
     Dates: start: 20040305
  10. PROMETHAZINE W/ CODEINE [Concomitant]
  11. CEPHALEXIN [Concomitant]
  12. FAMOTIDINE [Concomitant]
  13. SEROQUEL [Suspect]
     Indication: DEPRESSION
     Dosage: 25 TO 50 MG
     Route: 048
     Dates: start: 20040305
  14. PROVENTIL-HFA [Concomitant]
  15. PRILOSEC [Concomitant]
  16. GLIMEPIRIDE [Concomitant]
  17. NORVASC [Concomitant]
     Dates: start: 20041115
  18. MONOPRIL [Concomitant]
     Dates: start: 19970101
  19. SEROQUEL [Suspect]
     Dosage: 25 TO 300 MG
     Route: 048
  20. SEROQUEL [Suspect]
     Dosage: 25 TO 100 MG
     Route: 048
  21. SEROQUEL [Suspect]
     Dosage: 25 TO 100 MG
     Route: 048
  22. POTASSIUM CL [Concomitant]
  23. IBUPROFEN [Concomitant]
     Dosage: 800 MG TAB TID PRN WITH FOOD
     Dates: start: 20041115
  24. PROPOXY [Concomitant]
  25. DIPHENHYDRAMINE [Concomitant]
  26. SEROQUEL [Suspect]
     Dosage: 25 TO 100 MG
     Route: 048
  27. SEROQUEL [Suspect]
     Dosage: 25 TO 100 MG
     Route: 048
  28. CLIMARA [Concomitant]
  29. TRILEPTAL [Concomitant]
     Indication: ANGER
     Dates: start: 20040305
  30. HYDROCODONE BITARTRATE [Concomitant]
  31. GUAIFENESIN [Concomitant]
  32. ZITHROMAX / ZMAX [Concomitant]
  33. AMOXICILLIN AND CLAVULANATE POTASSIUM [Concomitant]
  34. SEROQUEL [Suspect]
     Indication: BIPOLAR DISORDER
     Dosage: 25 TO 50 MG
     Route: 048
     Dates: start: 20040305
  35. SEROQUEL [Suspect]
     Dosage: 25 TO 300 MG
     Route: 048
  36. BIAXIN [Concomitant]
  37. FLUCONAZOLE [Concomitant]
  38. LEVAQUIN [Concomitant]
  39. NYSTATIN [Concomitant]
  40. CLOZARIL [Concomitant]
  41. BACTRIM DS [Concomitant]
     Dosage: TWO TIMES A DAY
     Dates: start: 20080501
  42. SEROQUEL [Suspect]
     Dosage: 25 TO 300 MG
     Route: 048
  43. SYNTHROID [Concomitant]
     Dates: start: 20041115
  44. HYDROCHLOROTHIAZIDE [Concomitant]
     Indication: BLOOD PRESSURE
     Dates: start: 20041115
  45. FERROUS SULFATE TAB [Concomitant]
  46. AVAPRO [Concomitant]
     Dates: start: 20041115
  47. GEODON [Concomitant]
  48. TAMIFLU [Concomitant]

REACTIONS (36)
  - HERPES SIMPLEX [None]
  - VULVOVAGINAL CANDIDIASIS [None]
  - ARTHROPOD BITE [None]
  - SINUSITIS [None]
  - INFLUENZA [None]
  - OROPHARYNGEAL PAIN [None]
  - DIARRHOEA [None]
  - METASTASIS [None]
  - WHEEZING [None]
  - ABDOMINAL PAIN UPPER [None]
  - PAIN [None]
  - WEIGHT INCREASED [None]
  - TYPE 2 DIABETES MELLITUS [None]
  - SUBCUTANEOUS ABSCESS [None]
  - HYPOGLYCAEMIA [None]
  - ANAEMIA [None]
  - TOXOPLASMOSIS [None]
  - CARBOHYDRATE METABOLISM DISORDER [None]
  - ARTHRALGIA [None]
  - NAUSEA [None]
  - GLUCOSE TOLERANCE IMPAIRED [None]
  - INFECTIOUS MONONUCLEOSIS [None]
  - HYPERTHYROIDISM [None]
  - BRONCHITIS [None]
  - HYPERHIDROSIS [None]
  - VOMITING [None]
  - NOCTURIA [None]
  - HEADACHE [None]
  - DIABETIC COMPLICATION [None]
  - BASEDOW'S DISEASE [None]
  - OBESITY [None]
  - ABDOMINAL DISCOMFORT [None]
  - DERMATITIS [None]
  - RELAPSING FEVER [None]
  - BLOOD CHOLESTEROL INCREASED [None]
  - HYPERLIPIDAEMIA [None]
